FAERS Safety Report 7639378-4 (Version None)
Quarter: 2011Q3

REPORT INFORMATION
  Report Type: 
  Country: None (occurrence: None)
  Receive Date: 20110722
  Receipt Date: 20110706
  Transmission Date: 20111222
  Serious: Yes (Hospitalization)
  Sender: FDA-Public Use
  Company Number: 2011MA008426

PATIENT
  Age: 48 Year
  Sex: Female

DRUGS (2)
  1. ALBUTEROL SULFATE [Suspect]
     Indication: RESPIRATORY FAILURE
     Dosage: INH
     Route: 055
  2. IPRATROPIUM BROMIDE [Suspect]
     Indication: RESPIRATORY FAILURE
     Dosage: INH
     Route: 055

REACTIONS (3)
  - DEVICE LEAKAGE [None]
  - PUPILS UNEQUAL [None]
  - MYDRIASIS [None]
